FAERS Safety Report 5491583-1 (Version None)
Quarter: 2007Q4

REPORT INFORMATION
  Report Type: 
  Country: None (occurrence: None)
  Receive Date: 20071018
  Receipt Date: 20071018
  Transmission Date: 20080405
  Serious: Yes (Life-Threatening, Hospitalization)
  Sender: FDA-Public Use
  Company Number: None

PATIENT
  Sex: Female

DRUGS (5)
  1. LEVAQUIN [Suspect]
     Indication: PNEUMONIA
     Dates: start: 20070528, end: 20070530
  2. METOPROLOL [Concomitant]
  3. AMLODIPINE [Concomitant]
  4. PREDNISOLONE [Concomitant]
  5. HYDROXYCHLOROQUINE SULFATE [Concomitant]

REACTIONS (7)
  - ELECTROCARDIOGRAM ABNORMAL [None]
  - ELECTROCARDIOGRAM QT PROLONGED [None]
  - ELECTROCARDIOGRAM REPOLARISATION ABNORMALITY [None]
  - ELECTROCARDIOGRAM T WAVE INVERSION [None]
  - HEART RATE DECREASED [None]
  - LEFT VENTRICULAR HYPERTROPHY [None]
  - NO THERAPEUTIC RESPONSE [None]
